FAERS Safety Report 5444338-8 (Version None)
Quarter: 2007Q3

REPORT INFORMATION
  Report Type: 
  Country: None (occurrence: None)
  Receive Date: 20070831
  Receipt Date: 20070820
  Transmission Date: 20080115
  Serious: Yes (Hospitalization)
  Sender: FDA-Public Use
  Company Number: 2007EU001841

PATIENT
  Sex: Male

DRUGS (4)
  1. PROGRAF [Suspect]
     Indication: ECZEMA
     Dosage: %, /D, TOPICAL
     Route: 061
  2. PENICILLIN [Suspect]
     Indication: ANIMAL BITE
     Dosage: 125 MG, UID/QD, ORAL
     Route: 048
  3. TETANUS VACCINE(TETANUS VACCINE) [Suspect]
     Indication: ANIMAL BITE
     Dosage: /D, INTRAMUSCULAR
     Route: 030
  4. ANTIDEPRESSANTS [Concomitant]

REACTIONS (4)
  - ANIMAL BITE [None]
  - FLUID RETENTION [None]
  - PRURITUS [None]
  - SKIN EXFOLIATION [None]
